FAERS Safety Report 18398496 (Version 1)
Quarter: 2020Q4

REPORT INFORMATION
  Report Type: Report from Study
  Country: US (occurrence: US)
  Receive Date: 20201019
  Receipt Date: 20201019
  Transmission Date: 20210114
  Serious: Yes (Other)
  Sender: FDA-Public Use
  Company Number: US-ELI_LILLY_AND_COMPANY-US202010006928

PATIENT
  Sex: Female

DRUGS (2)
  1. MIRVETUXIMAB SORAVTANSINE [Concomitant]
     Active Substance: MIRVETUXIMAB SORAVTANSINE
     Indication: ENDOMETRIAL CANCER
     Dosage: 6 MG/KG, CYCLICAL
     Route: 042
  2. GEMCITABINE HYDROCHLORIDE. [Suspect]
     Active Substance: GEMCITABINE HYDROCHLORIDE
     Indication: ENDOMETRIAL CANCER
     Dosage: 800 MG/M2, CYCLICAL
     Route: 042

REACTIONS (3)
  - Platelet count abnormal [Unknown]
  - Neutrophil count abnormal [Unknown]
  - White blood cell count abnormal [Unknown]
